FAERS Safety Report 24448303 (Version 1)
Quarter: 2024Q4

REPORT INFORMATION
  Report Type: Report from Study
  Country: CA (occurrence: CA)
  Receive Date: 20241017
  Receipt Date: 20241017
  Transmission Date: 20250114
  Serious: Yes (Other)
  Sender: ABBVIE
  Company Number: CA-ABBVIE-5959458

PATIENT
  Age: 30 Year
  Sex: Female

DRUGS (2)
  1. SKYRIZI [Suspect]
     Active Substance: RISANKIZUMAB-RZAA
     Indication: Crohn^s disease
     Route: 058
     Dates: start: 20230512
  2. SKYRIZI [Suspect]
     Active Substance: RISANKIZUMAB-RZAA
     Route: 058
     Dates: start: 2024

REACTIONS (17)
  - Anal fistula [Unknown]
  - Bladder hypertrophy [Unknown]
  - Diarrhoea [Unknown]
  - Haematochezia [Unknown]
  - Mucous stools [Unknown]
  - Abdominal pain [Unknown]
  - Nausea [Unknown]
  - Vaginal discharge [Unknown]
  - Arthralgia [Unknown]
  - Alopecia [Unknown]
  - Trichorrhexis [Unknown]
  - Gastrointestinal wall thickening [Unknown]
  - Colitis [Not Recovered/Not Resolved]
  - Intestinal dilatation [Unknown]
  - Anal dilatation [Unknown]
  - Bladder dilatation [Unknown]
  - Post procedural inflammation [Unknown]

NARRATIVE: CASE EVENT DATE: 20231001
